FAERS Safety Report 26031437 (Version 2)
Quarter: 2025Q4

REPORT INFORMATION
  Report Type: Report from Study
  Country: BR (occurrence: BR)
  Receive Date: 20251112
  Receipt Date: 20251221
  Transmission Date: 20260117
  Serious: Yes (Life-Threatening, Hospitalization, Other)
  Sender: ALEXION PHARMACEUTICALS
  Company Number: BR-AstraZeneca-CH-00987603A

PATIENT
  Age: 43 Year
  Sex: Female

DRUGS (3)
  1. SOLIRIS [Suspect]
     Active Substance: ECULIZUMAB
     Indication: Paroxysmal nocturnal haemoglobinuria
     Dosage: 600 MILLIGRAM, QW
     Dates: start: 20140930, end: 20141021
  2. SOLIRIS [Suspect]
     Active Substance: ECULIZUMAB
     Dosage: 900 MILLIGRAM, Q2W
     Dates: start: 20141030
  3. HYDROXYCHLOROQUINE [Concomitant]
     Active Substance: HYDROXYCHLOROQUINE
     Dosage: UNK
     Route: 065

REACTIONS (20)
  - Lupus endocarditis [Not Recovered/Not Resolved]
  - Aneurysm [Unknown]
  - Anxiety disorder [Unknown]
  - Joint injury [Unknown]
  - Gastrointestinal disorder [Unknown]
  - Liver disorder [Unknown]
  - Gallbladder disorder [Unknown]
  - Varicose vein [Unknown]
  - Constipation [Recovered/Resolved]
  - Inflammation [Unknown]
  - Gastritis [Unknown]
  - Burning sensation [Unknown]
  - Discomfort [Unknown]
  - Pigmentation disorder [Unknown]
  - Memory impairment [Unknown]
  - Pain [Unknown]
  - Fluid retention [Unknown]
  - Wound [Unknown]
  - Weight decreased [Unknown]
  - Decreased appetite [Unknown]

NARRATIVE: CASE EVENT DATE: 20190101
